FAERS Safety Report 21099518 (Version 1)
Quarter: 2022Q3

REPORT INFORMATION
  Report Type: Spontaneous
  Country: US (occurrence: US)
  Receive Date: 20220719
  Receipt Date: 20220719
  Transmission Date: 20221027
  Serious: No
  Sender: FDA-Public Use
  Company Number: US-BRISTOL-MYERS SQUIBB COMPANY-2022-065791

PATIENT
  Age: 81 Year
  Sex: Female
  Weight: 49.9 kg

DRUGS (13)
  1. ELIQUIS [Suspect]
     Active Substance: APIXABAN
     Indication: Cerebrovascular accident prophylaxis
     Route: 048
     Dates: start: 20210109
  2. ALDACTONE [Concomitant]
     Active Substance: SPIRONOLACTONE
     Indication: Product used for unknown indication
     Route: 065
  3. LIPITOR [Concomitant]
     Active Substance: ATORVASTATIN CALCIUM
     Indication: Product used for unknown indication
     Route: 065
  4. ATROVENT [Concomitant]
     Active Substance: IPRATROPIUM BROMIDE
     Indication: Asthma
     Route: 065
  5. FLOVENT [Concomitant]
     Active Substance: FLUTICASONE PROPIONATE
     Indication: Product used for unknown indication
     Route: 065
  6. ALUMINUM HYDROXIDE\MAGNESIUM CARBONATE [Concomitant]
     Active Substance: ALUMINUM HYDROXIDE\MAGNESIUM CARBONATE
     Indication: Product used for unknown indication
     Route: 065
  7. CENTRUM SILVER [ASCORBIC ACID;CALCIUM;MINERALS NOS;RETINOL;TOCOPHERYL [Concomitant]
     Indication: Product used for unknown indication
     Route: 065
  8. ERGOCALCIFEROL [Concomitant]
     Active Substance: ERGOCALCIFEROL
     Indication: Product used for unknown indication
     Route: 065
  9. MINOXIDIL [Concomitant]
     Active Substance: MINOXIDIL
     Indication: Product used for unknown indication
     Route: 065
  10. PATANASE [Concomitant]
     Active Substance: OLOPATADINE HYDROCHLORIDE
     Indication: Product used for unknown indication
     Route: 065
  11. PROLIA [Concomitant]
     Active Substance: DENOSUMAB
     Indication: Product used for unknown indication
     Route: 065
  12. TORSEMIDE [Concomitant]
     Active Substance: TORSEMIDE
     Indication: Diuretic therapy
     Route: 065
  13. CALCIUM CARBONATE\MAGNESIUM CARBONATE\MAGNESIUM TRISILICATE [Concomitant]
     Active Substance: CALCIUM CARBONATE\MAGNESIUM CARBONATE\MAGNESIUM TRISILICATE
     Indication: Product used for unknown indication
     Route: 065

REACTIONS (2)
  - Blood magnesium decreased [Unknown]
  - Incorrect product administration duration [Unknown]

NARRATIVE: CASE EVENT DATE: 20220627
